FAERS Safety Report 15568922 (Version 2)
Quarter: 2018Q4

REPORT INFORMATION
  Report Type: Report from Study
  Country: DE (occurrence: DE)
  Receive Date: 20181031
  Receipt Date: 20181106
  Transmission Date: 20190205
  Serious: No
  Sender: FDA-Public Use
  Company Number: DE-ROCHE-2098755

PATIENT
  Age: 45 Year
  Sex: Male

DRUGS (4)
  1. FAMPYRA [Concomitant]
     Active Substance: DALFAMPRIDINE
     Route: 065
  2. OCREVUS [Suspect]
     Active Substance: OCRELIZUMAB
     Indication: RELAPSING-REMITTING MULTIPLE SCLEROSIS
     Route: 042
     Dates: start: 20180323
  3. OCREVUS [Suspect]
     Active Substance: OCRELIZUMAB
     Dosage: 3RD INFUSION
     Route: 042
     Dates: start: 20181005
  4. SATIVEX [Concomitant]
     Active Substance: NABIXIMOLS
     Dosage: AS REQUIRED
     Route: 065

REACTIONS (2)
  - Nasopharyngitis [Recovered/Resolved]
  - Fatigue [Recovered/Resolved]

NARRATIVE: CASE EVENT DATE: 20180323
